FAERS Safety Report 9946766 (Version 1)
Quarter: 2014Q1

REPORT INFORMATION
  Report Type: Report from Study
  Country: US (occurrence: US)
  Receive Date: 20140303
  Receipt Date: 20140303
  Transmission Date: 20141002
  Serious: No
  Sender: FDA-Public Use
  Company Number: US-ABBVIE-13P-163-1063204-00

PATIENT
  Age: 22 Year
  Sex: Female

DRUGS (15)
  1. HUMIRA [Suspect]
     Indication: COLITIS ULCERATIVE
     Dosage: LOADING DOSE
     Dates: start: 20130312, end: 20130312
  2. ZYRTEC [Concomitant]
     Indication: HYPERSENSITIVITY
     Dosage: 10 MG DAILY
  3. ENALAPRIL [Concomitant]
     Indication: HYPERTENSION
  4. IMPLANON [Concomitant]
     Indication: CONTRACEPTION
  5. IMPLANON [Concomitant]
     Indication: ENDOMETRIOSIS
  6. PROZAC [Concomitant]
     Indication: MOOD ALTERED
     Dosage: 10 MG DAILY
  7. ZANTAC [Concomitant]
     Indication: GASTROOESOPHAGEAL REFLUX DISEASE
  8. TOPAMAX [Concomitant]
     Indication: MIGRAINE
  9. PREDNISONE [Concomitant]
     Indication: COLITIS ULCERATIVE
     Dosage: 40 MG DAILY
  10. AMITIZA [Concomitant]
     Indication: IRRITABLE BOWEL SYNDROME
     Dosage: 24 MCG DAILY
  11. PROBIOTICS [Concomitant]
     Indication: PRODUCT USED FOR UNKNOWN INDICATION
  12. MULTIVITAMIN [Concomitant]
     Indication: PRODUCT USED FOR UNKNOWN INDICATION
  13. LORTAB [Concomitant]
     Indication: ABDOMINAL PAIN
     Dosage: 10-500 MG; AS REQUIRED
  14. LORTAB [Concomitant]
     Indication: COLITIS ULCERATIVE
  15. FIORICET [Concomitant]
     Indication: MIGRAINE
     Dosage: 5 MG/ 325 MG /40 MG

REACTIONS (2)
  - Injection site pain [Recovering/Resolving]
  - Injection site urticaria [Recovering/Resolving]
